FAERS Safety Report 8804487 (Version 3)
Quarter: 2012Q4

REPORT INFORMATION
  Report Type: 
  Country: US (occurrence: US)
  Receive Date: 20120923
  Receipt Date: 20121031
  Transmission Date: 20130627
  Serious: No
  Sender: FDA-Public Use
  Company Number: US-009507513-1209USA008129

PATIENT
  Sex: Female

DRUGS (3)
  1. IMPLANON [Suspect]
     Indication: CONTRACEPTION
     Dosage: 1 DF, UNK
  2. IMPLANON [Suspect]
     Dosage: 68 mg, 3 year implant
     Route: 059
     Dates: start: 20111104, end: 20120926
  3. IMPLANON [Suspect]
     Dosage: UNK

REACTIONS (2)
  - Injury [Unknown]
  - Device breakage [Unknown]
